FAERS Safety Report 5893539-3 (Version None)
Quarter: 2008Q3

REPORT INFORMATION
  Report Type: 
  Country: None (occurrence: None)
  Receive Date: 20080923
  Receipt Date: 20080910
  Transmission Date: 20090109
  Serious: Yes (Hospitalization)
  Sender: FDA-Public Use
  Company Number: IL-NOVOPROD-278949

PATIENT
  Age: 61 Year
  Sex: Male
  Weight: 84 kg

DRUGS (6)
  1. LEVEMIR [Suspect]
     Indication: TYPE 2 DIABETES MELLITUS
     Dosage: 20 IU, QD
     Dates: start: 20080301
  2. METFORMIN HCL [Concomitant]
     Dosage: 850 MG, BID
  3. SIMVASTATIN [Concomitant]
     Dosage: 20 MG, QD
  4. NIFEDIPINE [Concomitant]
     Dosage: 30 MG, BID
  5. ASPIRIN [Concomitant]
     Dosage: 100 MG, QD
  6. RAMIPRIL [Concomitant]
     Dosage: 10 MG, QD

REACTIONS (2)
  - CEREBROVASCULAR ACCIDENT [None]
  - HAEMORRHAGIC STROKE [None]
